FAERS Safety Report 17164426 (Version 1)
Quarter: 2019Q4

REPORT INFORMATION
  Report Type: Other
  Country: DE (occurrence: DE)
  Receive Date: 20191217
  Receipt Date: 20191217
  Transmission Date: 20200122
  Serious: Yes (Other)
  Sender: FDA-Public Use
  Company Number: DE-CELLTRION INC.-2019DE027288

PATIENT

DRUGS (41)
  1. RITUXIMAB (UNKNOWN) [Suspect]
     Active Substance: RITUXIMAB
     Indication: DIFFUSE LARGE B-CELL LYMPHOMA
     Dosage: 739 MG, UNK
     Route: 041
     Dates: start: 20190429, end: 20190429
  2. RITUXIMAB (UNKNOWN) [Suspect]
     Active Substance: RITUXIMAB
     Dosage: 739 MG, UNK
     Route: 041
     Dates: start: 20190611, end: 20190611
  3. VINCRISTINE [Suspect]
     Active Substance: VINCRISTINE
     Indication: DIFFUSE LARGE B-CELL LYMPHOMA
     Dosage: 1 MG, UNK
     Route: 041
     Dates: start: 20090612, end: 20190612
  4. PREDNISONE. [Suspect]
     Active Substance: PREDNISONE
     Dosage: 500 MG, UNK
     Route: 041
     Dates: start: 20190702, end: 20190702
  5. DOXORUBICIN [Suspect]
     Active Substance: DOXORUBICIN
     Indication: DIFFUSE LARGE B-CELL LYMPHOMA
     Dosage: 99 MG, UNK
     Route: 041
     Dates: start: 20190612, end: 20190612
  6. RITUXIMAB (UNKNOWN) [Suspect]
     Active Substance: RITUXIMAB
     Dosage: 739 MG, UNK
     Route: 041
     Dates: start: 20190520, end: 20190520
  7. DOXORUBICIN [Suspect]
     Active Substance: DOXORUBICIN
     Dosage: 99 MG, UNK
     Route: 041
     Dates: start: 20190521, end: 20190521
  8. RITUXIMAB (UNKNOWN) [Suspect]
     Active Substance: RITUXIMAB
     Dosage: 739 MG, UNK
     Route: 041
     Dates: start: 20190701, end: 20190701
  9. RITUXIMAB (UNKNOWN) [Suspect]
     Active Substance: RITUXIMAB
     Dosage: 738 MG, UNK
     Route: 041
     Dates: start: 20190822
  10. VINCRISTINE [Suspect]
     Active Substance: VINCRISTINE
     Dosage: 1 MG, UNK
     Route: 041
     Dates: start: 20190312, end: 20190312
  11. CYCLOPHOSPHAMIDE. [Suspect]
     Active Substance: CYCLOPHOSPHAMIDE
     Indication: DIFFUSE LARGE B-CELL LYMPHOMA
     Dosage: 1478 MG, UNK
     Route: 041
     Dates: start: 20190702, end: 20190702
  12. DOXORUBICIN [Suspect]
     Active Substance: DOXORUBICIN
     Dosage: 99 MG, UNK
     Route: 041
     Dates: start: 20190405, end: 20190405
  13. MESNA. [Concomitant]
     Active Substance: MESNA
     Indication: PROPHYLAXIS
     Dosage: 400 MG (PREMEDICATION PRIOR CHOP)
     Route: 048
     Dates: start: 20190312, end: 20190702
  14. PARACETAMOL [Concomitant]
     Active Substance: ACETAMINOPHEN
     Indication: PROPHYLAXIS
     Dosage: 500 MG (PRE MEDICATION PRIOR RIXATHON)
     Route: 048
     Dates: start: 20190311
  15. RITUXIMAB (UNKNOWN) [Suspect]
     Active Substance: RITUXIMAB
     Dosage: 739 MG, UNK
     Route: 041
     Dates: start: 20190311, end: 20190311
  16. CYCLOPHOSPHAMIDE. [Suspect]
     Active Substance: CYCLOPHOSPHAMIDE
     Dosage: 1478 MG, UNK
     Route: 041
     Dates: start: 20190312, end: 20190312
  17. CYCLOPHOSPHAMIDE. [Suspect]
     Active Substance: CYCLOPHOSPHAMIDE
     Dosage: 1478 MG, UNK
     Route: 041
     Dates: start: 20190405, end: 20190405
  18. DOXORUBICIN [Suspect]
     Active Substance: DOXORUBICIN
     Dosage: 99 MG, UNK
     Route: 041
     Dates: start: 20190430, end: 20190430
  19. VALSARTAN. [Concomitant]
     Active Substance: VALSARTAN
     Indication: HYPERTENSION
     Dosage: 160 MG, QD (MORNING)
     Route: 048
  20. VINCRISTINE [Suspect]
     Active Substance: VINCRISTINE
     Dosage: 1 MG, UNK
     Route: 041
     Dates: start: 20190430, end: 20190430
  21. PREDNISONE. [Suspect]
     Active Substance: PREDNISONE
     Dosage: 500 MG, UNK
     Route: 041
     Dates: start: 20190430, end: 20190504
  22. NEULASTA [Concomitant]
     Active Substance: PEGFILGRASTIM
     Indication: PROPHYLAXIS
     Dosage: 6 MG, (PREMEDICATION PRIOR CHOP)
     Route: 058
     Dates: start: 20190313, end: 20190716
  23. RITUXIMAB (UNKNOWN) [Suspect]
     Active Substance: RITUXIMAB
     Dosage: 739 MG, UNK
     Route: 041
     Dates: start: 20190404, end: 20190404
  24. VINCRISTINE [Suspect]
     Active Substance: VINCRISTINE
     Dosage: 1 MG, UNK
     Route: 041
     Dates: start: 20190521, end: 20190521
  25. DOXORUBICIN [Suspect]
     Active Substance: DOXORUBICIN
     Dosage: 99 MG, UNK
     Route: 041
     Dates: start: 20190312, end: 20190312
  26. PREDNISOLUT [PREDNISOLONE SODIUM SUCCINATE] [Concomitant]
     Indication: PROPHYLAXIS
     Dosage: 100 MG (PREMEDICATION PRIOR RIXATHON)
     Route: 042
     Dates: start: 20190311
  27. RANITIDINE. [Concomitant]
     Active Substance: RANITIDINE
     Indication: PROPHYLAXIS
     Dosage: 50 MG (PRE MEDICATION PRIOR RIXATHON)
     Route: 042
     Dates: start: 20190311
  28. RITUXIMAB (UNKNOWN) [Suspect]
     Active Substance: RITUXIMAB
     Dosage: 739 MG, UNK
     Route: 041
     Dates: start: 20190722, end: 20190722
  29. PREDNISONE. [Suspect]
     Active Substance: PREDNISONE
     Indication: DIFFUSE LARGE B-CELL LYMPHOMA
     Dosage: 500 MG, UNK
     Route: 041
     Dates: start: 20190521, end: 20190525
  30. PREDNISONE. [Suspect]
     Active Substance: PREDNISONE
     Dosage: 500 MG, UNK
     Route: 041
     Dates: start: 20190612, end: 20190616
  31. PREDNISONE. [Suspect]
     Active Substance: PREDNISONE
     Dosage: 500 MG, UNK
     Route: 041
     Dates: start: 20190405, end: 20190409
  32. CYCLOPHOSPHAMIDE. [Suspect]
     Active Substance: CYCLOPHOSPHAMIDE
     Dosage: 1478 MG, UNK
     Route: 041
     Dates: start: 20190430, end: 20190430
  33. CYCLOPHOSPHAMIDE. [Suspect]
     Active Substance: CYCLOPHOSPHAMIDE
     Dosage: 1478 MG, UNK
     Route: 041
     Dates: start: 20190612, end: 20190612
  34. VINCRISTINE [Suspect]
     Active Substance: VINCRISTINE
     Dosage: 1 MG, UNK
     Route: 041
     Dates: start: 20190702, end: 20190702
  35. VINCRISTINE [Suspect]
     Active Substance: VINCRISTINE
     Dosage: 1 MG, UNK
     Route: 041
     Dates: start: 20190405, end: 20190405
  36. PREDNISONE. [Suspect]
     Active Substance: PREDNISONE
     Dosage: 500 MG, UNK
     Route: 041
     Dates: start: 20190312, end: 20190316
  37. CYCLOPHOSPHAMIDE. [Suspect]
     Active Substance: CYCLOPHOSPHAMIDE
     Dosage: 1478 MG, UNK
     Route: 041
     Dates: start: 20190521, end: 20190521
  38. DOXORUBICIN [Suspect]
     Active Substance: DOXORUBICIN
     Dosage: 99 MG, UNK
     Route: 041
     Dates: start: 20190702, end: 20190702
  39. DIMETINDENE [Concomitant]
     Active Substance: DIMETHINDENE
     Indication: PROPHYLAXIS
     Dosage: 2 MG (PRE MEDICATION PRIOR RIXATHON)
     Route: 042
     Dates: start: 201903
  40. HYDROCHLOROTHIAZIDE. [Concomitant]
     Active Substance: HYDROCHLOROTHIAZIDE
     Indication: HYPERTENSION
     Dosage: 12MG,5MG (AS REQUIRED)
     Route: 048
  41. PALONOSETRON. [Concomitant]
     Active Substance: PALONOSETRON HYDROCHLORIDE
     Indication: PROPHYLAXIS
     Dosage: 250 MG (PREMEDICATION PRIOR CHOP)
     Route: 042
     Dates: start: 20190312, end: 20190702

REACTIONS (4)
  - Monoplegia [Recovered/Resolved]
  - Myalgia [Recovered/Resolved]
  - Fatigue [Not Recovered/Not Resolved]
  - Speech disorder [Recovered/Resolved]

NARRATIVE: CASE EVENT DATE: 20190314
